FAERS Safety Report 22010236 (Version 2)
Quarter: 2023Q2

REPORT INFORMATION
  Report Type: Spontaneous
  Country: US (occurrence: US)
  Receive Date: 20230220
  Receipt Date: 20230512
  Transmission Date: 20230721
  Serious: Yes (Other)
  Sender: FDA-Public Use
  Company Number: US-TEVA-2023-US-2858575

PATIENT
  Age: 63 Year
  Sex: Male
  Weight: 97.52 kg

DRUGS (15)
  1. HYDROCHLOROTHIAZIDE\VALSARTAN [Suspect]
     Active Substance: HYDROCHLOROTHIAZIDE\VALSARTAN
     Indication: Hypertension
     Dosage: 160-12.5MG 1 TABLET BY MOUTH DAILY
     Route: 048
     Dates: start: 20151002, end: 20180906
  2. HYDROCHLOROTHIAZIDE\LOSARTAN POTASSIUM [Suspect]
     Active Substance: HYDROCHLOROTHIAZIDE\LOSARTAN POTASSIUM
     Indication: Hypertension
     Dosage: 50-12.5MG 1 TABLET DAILY
     Route: 048
     Dates: start: 2018
  3. HYDROCHLOROTHIAZIDE\VALSARTAN [Suspect]
     Active Substance: HYDROCHLOROTHIAZIDE\VALSARTAN
     Indication: Hypertension
     Dosage: 160-12.5MG 1 TABLET BY MOUTH DAILY
     Route: 048
     Dates: start: 2015
  4. HYDROCHLOROTHIAZIDE\LOSARTAN POTASSIUM [Suspect]
     Active Substance: HYDROCHLOROTHIAZIDE\LOSARTAN POTASSIUM
     Indication: Hypertension
     Dosage: 50-12.5MG 1 TABLET DAILY
     Route: 048
     Dates: start: 2018
  5. HYDROCHLOROTHIAZIDE\LOSARTAN POTASSIUM [Suspect]
     Active Substance: HYDROCHLOROTHIAZIDE\LOSARTAN POTASSIUM
     Indication: Hypertension
     Dosage: 50-12.5MG 1 TABLET DAILY
     Route: 048
     Dates: start: 2019
  6. ATORVASTATIN [Concomitant]
     Active Substance: ATORVASTATIN
     Indication: Blood cholesterol increased
     Dosage: 40 MILLIGRAM DAILY; 20MG TWICE DAILY UNTIL PRESENT
     Route: 048
     Dates: start: 2015
  7. OMEPRAZOLE [Concomitant]
     Active Substance: OMEPRAZOLE
     Indication: Dyspepsia
     Dosage: 20 MILLIGRAM DAILY; 20MG, 1 CAPSULE EVERY NIGHT AT BEDTIME AS NEEDED UNTIL PRESENT
     Dates: start: 2015
  8. LORAZEPAM [Concomitant]
     Active Substance: LORAZEPAM
     Indication: Anxiety
     Dosage: 2 MILLIGRAM DAILY; 1MG, TWICE DAILY AS NEEDED UNTIL PRESENT
     Route: 048
     Dates: start: 2018
  9. IBUPROFEN [Concomitant]
     Active Substance: IBUPROFEN
     Indication: Pain
     Dosage: 2400 MILLIGRAM DAILY; 800MG, EVERY 8 HOURS WITH FOOD AS NEEDED UNTIL PRESENT
     Route: 048
     Dates: start: 2015
  10. ASPIRIN [Concomitant]
     Active Substance: ASPIRIN
     Indication: Cardiovascular event prophylaxis
     Dosage: 81 MILLIGRAM DAILY; 81MG DAILY UNTIL PRESENT
     Dates: start: 2015
  11. VITAMIN D [Concomitant]
     Active Substance: VITAMIN D NOS
     Indication: Prophylaxis
     Dosage: 15 MICROGRAM DAILY; 15MCG/DAILY UNTIL PRESENT
     Dates: start: 2019
  12. Mens Multivitamin [Concomitant]
     Indication: Prophylaxis
     Dosage: 1 PILL/DAILY UNTIL PRESENT
     Dates: start: 2019
  13. OMEGA 3 [Concomitant]
     Active Substance: CAPSAICIN
     Indication: Cardiovascular event prophylaxis
     Dosage: 1000 MILLIGRAM DAILY; 1000MG/DAILY UNTIL PRESENT
     Dates: start: 2019
  14. POTASSIUM CHLORIDE [Concomitant]
     Active Substance: POTASSIUM CHLORIDE
     Indication: Prophylaxis
     Dosage: 1000 MILLIGRAM DAILY; 1000MG/DAILY UNTIL PRESENT
     Dates: start: 2019
  15. VITAMIN B12 [Concomitant]
     Active Substance: CYANOCOBALAMIN
     Indication: Prophylaxis
     Dosage: 500 MICROGRAM DAILY; 500MCG/DAILY UNTIL PRESENT
     Dates: start: 2019

REACTIONS (5)
  - Prostate cancer [Unknown]
  - Erectile dysfunction [Not Recovered/Not Resolved]
  - Polyuria [Not Recovered/Not Resolved]
  - Incontinence [Not Recovered/Not Resolved]
  - Pain [Not Recovered/Not Resolved]
